FAERS Safety Report 10239251 (Version 1)
Quarter: 2014Q2

REPORT INFORMATION
  Report Type: Report from Study
  Country: IE (occurrence: IE)
  Receive Date: 20140616
  Receipt Date: 20140616
  Transmission Date: 20141212
  Serious: Yes (Death)
  Sender: FDA-Public Use
  Company Number: IE-ROCHE-1418536

PATIENT
  Sex: 0

DRUGS (4)
  1. TRASTUZUMAB [Suspect]
     Indication: HER-2 POSITIVE BREAST CANCER
     Dosage: ON CYCLE 1 DAY 1
     Route: 042
  2. TRASTUZUMAB [Suspect]
     Dosage: FOR ONE YEAR
     Route: 042
  3. DOCETAXEL [Suspect]
     Indication: HER-2 POSITIVE BREAST CANCER
     Dosage: 6 CYCLES
     Route: 065
  4. CARBOPLATIN [Suspect]
     Indication: HER-2 POSITIVE BREAST CANCER
     Dosage: AUC 6
     Route: 042

REACTIONS (2)
  - Neutropenic sepsis [Fatal]
  - Colitis [Fatal]
